FAERS Safety Report 20990517 (Version 2)
Quarter: 2022Q3

REPORT INFORMATION
  Report Type: Report from Study
  Country: CO (occurrence: CO)
  Receive Date: 20220622
  Receipt Date: 20220728
  Transmission Date: 20221026
  Serious: Yes (Other)
  Sender: FDA-Public Use
  Company Number: CO-ABBVIE-22K-036-4437719-00

PATIENT
  Sex: Female
  Weight: 65 kg

DRUGS (1)
  1. HUMIRA [Suspect]
     Active Substance: ADALIMUMAB
     Indication: Uveitis
     Route: 058
     Dates: start: 20220401, end: 20220422

REACTIONS (9)
  - Visual impairment [Recovering/Resolving]
  - Vision blurred [Recovering/Resolving]
  - Photophobia [Recovering/Resolving]
  - Visual brightness [Recovering/Resolving]
  - Eye inflammation [Recovering/Resolving]
  - Visual impairment [Recovering/Resolving]
  - Ocular discomfort [Unknown]
  - Vitreous floaters [Unknown]
  - Body height decreased [Recovering/Resolving]

NARRATIVE: CASE EVENT DATE: 20220101
